FAERS Safety Report 8281442 (Version 2)
Quarter: 2012Q4

REPORT INFORMATION
  Report Type: 
  Country: IL (occurrence: IL)
  Receive Date: 20111209
  Receipt Date: 20121026
  Transmission Date: 20130627
  Serious: Yes (Other)
  Sender: FDA-Public Use
  Company Number: IL-JNJFOC-20111112372

PATIENT
  Age: 48 Year
  Sex: Female

DRUGS (7)
  1. REMICADE [Suspect]
     Indication: CROHN^S DISEASE
     Route: 042
     Dates: start: 20110524
  2. HYDROCORTISONE [Concomitant]
     Indication: PREMEDICATION
     Route: 065
  3. AHISTON [Concomitant]
     Indication: PREMEDICATION
     Route: 065
  4. PARACETAMOL [Concomitant]
     Indication: PREMEDICATION
     Route: 065
  5. METHOTREXATE [Concomitant]
     Route: 065
  6. STEROIDS NOS [Concomitant]
     Indication: PREMEDICATION
     Route: 065
  7. ANTIHISTAMINES [Concomitant]
     Indication: PREMEDICATION
     Route: 065

REACTIONS (3)
  - Suffocation feeling [Recovered/Resolved]
  - Infusion related reaction [Recovering/Resolving]
  - Urticaria [Unknown]
